FAERS Safety Report 21655262 (Version 1)
Quarter: 2022Q4

REPORT INFORMATION
  Report Type: Spontaneous
  Country: CN (occurrence: CN)
  Receive Date: 20221129
  Receipt Date: 20221129
  Transmission Date: 20230113
  Serious: Yes (Hospitalization)
  Sender: FDA-Public Use
  Company Number: None

PATIENT
  Age: 60 Year
  Sex: Male
  Weight: 68 kg

DRUGS (3)
  1. DOCETAXEL [Suspect]
     Active Substance: DOCETAXEL
     Indication: Lung adenocarcinoma
     Dosage: INTRAVENOUS DRIP
     Route: 042
     Dates: start: 20221103, end: 20221103
  2. TRASTUZUMAB [Suspect]
     Active Substance: TRASTUZUMAB
     Indication: Lung adenocarcinoma
     Dosage: STRENGTH: 150 MG, INTRAVENOUS DRIP
     Route: 042
     Dates: start: 20221103, end: 20221103
  3. CARBOPLATIN [Suspect]
     Active Substance: CARBOPLATIN
     Indication: Lung adenocarcinoma
     Dosage: 0.5 GRAM, QD, INTRAVENOUS DRIP
     Route: 042
     Dates: start: 20221103, end: 20221103

REACTIONS (3)
  - Product use in unapproved indication [Recovered/Resolved]
  - Myelosuppression [Recovered/Resolved]
  - Agranulocytosis [Recovered/Resolved]

NARRATIVE: CASE EVENT DATE: 20221110
